FAERS Safety Report 21082723 (Version 1)
Quarter: 2022Q3

REPORT INFORMATION
  Report Type: Other
  Country: CN (occurrence: CN)
  Receive Date: 20220714
  Receipt Date: 20220714
  Transmission Date: 20221027
  Serious: Yes (Other)
  Sender: FDA-Public Use
  Company Number: CN-BoehringerIngelheim-2022-BI-180633

PATIENT
  Sex: Female

DRUGS (2)
  1. ALTEPLASE [Suspect]
     Active Substance: ALTEPLASE
     Indication: Ischaemic stroke
     Dosage: 0.9 MG/KG (MAXIMUM DOSE 90 MG); 10% WERE INJECTED INTRAVENOUSLY WITHIN THE FIRST 1 MIN
     Route: 042
  2. ALTEPLASE [Suspect]
     Active Substance: ALTEPLASE
     Dosage: AND THE REST WERE TREATED WITH CONTINUOUS MICROPUMP INSTILLATION FOR 60 MIN.
     Route: 042

REACTIONS (2)
  - Haemorrhagic transformation stroke [Unknown]
  - Off label use [Unknown]
